FAERS Safety Report 8820706 (Version 5)
Quarter: 2013Q4

REPORT INFORMATION
  Report Type: Report from Study
  Country: JP (occurrence: JP)
  Receive Date: 20121002
  Receipt Date: 20131002
  Transmission Date: 20140711
  Serious: Yes (Hospitalization)
  Sender: FDA-Public Use
  Company Number: PHHY2012JP084952

PATIENT
  Age: 48 Year
  Sex: Male
  Weight: 44 kg

DRUGS (9)
  1. FTY 720 [Suspect]
     Indication: MULTIPLE SCLEROSIS
     Dosage: 0.5 MG, QD
     Route: 048
     Dates: start: 20120316
  2. BEZAFIBRATE [Concomitant]
     Indication: HYPERLIPIDAEMIA
     Dosage: 400 MG, UNK
     Route: 048
  3. TEGRETOL [Concomitant]
     Indication: HYPOAESTHESIA
     Dosage: 300 MG, UNK
     Route: 048
  4. LENDORMIN [Concomitant]
     Indication: INSOMNIA
     Dosage: 0.25 MG, UNK
     Route: 048
  5. ROHYPNOL [Concomitant]
     Indication: INSOMNIA
     Dosage: 1 MG, UNK
     Route: 048
  6. PURSENNID [Concomitant]
     Indication: CONSTIPATION
     Dosage: 36 MG, UNK
     Route: 048
  7. ALLEGRA [Concomitant]
     Indication: DERMATITIS
     Dosage: 120 MG, UNK
     Route: 048
     Dates: start: 20121204
  8. SAHNE [Concomitant]
     Indication: DERMATITIS
     Dosage: 1 DF, UNK
     Dates: start: 20121204
  9. SELTOUCH [Concomitant]
     Indication: OSTEOARTHRITIS
     Dosage: 1 DF, UNK
     Dates: start: 20121119

REACTIONS (7)
  - Multiple sclerosis [Recovered/Resolved]
  - Muscular weakness [Unknown]
  - Muscle spasms [Recovering/Resolving]
  - Monoplegia [Unknown]
  - White blood cell count decreased [Unknown]
  - Lymphocyte count decreased [Unknown]
  - Gamma-glutamyltransferase increased [Unknown]
